FAERS Safety Report 7777030-5 (Version None)
Quarter: 2011Q3

REPORT INFORMATION
  Report Type: 
  Country: None (occurrence: None)
  Receive Date: 20110926
  Receipt Date: 20110926
  Transmission Date: 20111222
  Serious: Yes (Hospitalization)
  Sender: FDA-Public Use
  Company Number: None

PATIENT
  Sex: Female
  Weight: 131 kg

DRUGS (1)
  1. LEVOTHYROXINE SODIUM [Suspect]
     Indication: HYPOTHYROIDISM
     Dosage: 1 DAILY 25 MCG TABLET
     Dates: start: 20110917, end: 20110923

REACTIONS (13)
  - FEELING JITTERY [None]
  - TINNITUS [None]
  - IRRITABILITY [None]
  - WEIGHT INCREASED [None]
  - HOT FLUSH [None]
  - MIGRAINE [None]
  - FEELING ABNORMAL [None]
  - INSOMNIA [None]
  - FEELING HOT [None]
  - ERYTHEMA [None]
  - HYPERHIDROSIS [None]
  - CHEST DISCOMFORT [None]
  - MATERNAL EXPOSURE DURING PREGNANCY [None]
